FAERS Safety Report 4321194-2 (Version None)
Quarter: 2004Q1

REPORT INFORMATION
  Report Type: 
  Country: None (occurrence: None)
  Receive Date: 20040323
  Receipt Date: 20040316
  Transmission Date: 20041129
  Serious: Yes (Hospitalization)
  Sender: FDA-Public Use
  Company Number: US-BRISTOL-MYERS SQUIBB COMPANY-12533865

PATIENT
  Age: 85 Year
  Sex: Female

DRUGS (2)
  1. TEQUIN [Suspect]
     Indication: BRONCHIAL INFECTION
     Route: 042
     Dates: start: 20040301
  2. TEQUIN [Suspect]
     Indication: URINARY TRACT INFECTION
     Route: 042
     Dates: start: 20040301

REACTIONS (2)
  - CARDIO-RESPIRATORY ARREST [None]
  - HYPOTENSION [None]
